FAERS Safety Report 7571341-4 (Version None)
Quarter: 2011Q2

REPORT INFORMATION
  Report Type: 
  Country: None (occurrence: None)
  Receive Date: 20110624
  Receipt Date: 20110615
  Transmission Date: 20111010
  Serious: Yes (Other)
  Sender: FDA-Public Use
  Company Number: B0726488A

PATIENT
  Age: 16 Year
  Sex: Female

DRUGS (1)
  1. VENTOLIN [Suspect]
     Indication: OFF LABEL USE
     Route: 061
     Dates: start: 20110610, end: 20110610

REACTIONS (10)
  - OFF LABEL USE [None]
  - SOFT TISSUE INJURY [None]
  - INCORRECT ROUTE OF DRUG ADMINISTRATION [None]
  - THERMAL BURN [None]
  - LOCALISED OEDEMA [None]
  - APPLICATION SITE DISCOLOURATION [None]
  - APPLICATION SITE NECROSIS [None]
  - PAIN [None]
  - APPLICATION SITE BURN [None]
  - NECROSIS [None]
